FAERS Safety Report 5615664-4 (Version None)
Quarter: 2008Q1

REPORT INFORMATION
  Report Type: 
  Country: None (occurrence: None)
  Receive Date: 20080206
  Receipt Date: 20080204
  Transmission Date: 20080703
  Serious: Yes (Hospitalization)
  Sender: FDA-Public Use
  Company Number: US-MERCK-0802USA00784

PATIENT
  Age: 82 Year
  Sex: Female

DRUGS (4)
  1. FOSAMAX [Suspect]
     Indication: OSTEOPOROSIS
     Route: 048
  2. TOLBUTAMIDE [Concomitant]
     Route: 065
  3. LISINOPRIL [Concomitant]
     Route: 065
  4. FELODIPINE [Concomitant]
     Route: 065

REACTIONS (2)
  - FALL [None]
  - MYALGIA [None]
